FAERS Safety Report 7360681-X (Version None)
Quarter: 2011Q1

REPORT INFORMATION
  Report Type: 
  Country: None (occurrence: None)
  Receive Date: 20110318
  Receipt Date: 20091002
  Transmission Date: 20110831
  Serious: Yes (Death, Hospitalization, Other)
  Sender: FDA-Public Use
  Company Number: US-BAYER-200937892NA

PATIENT
  Sex: Female
  Weight: 110.66 kg

DRUGS (34)
  1. TRASYLOL [Suspect]
     Dosage: 200 ML LOADING DOSE
     Route: 042
     Dates: start: 20021217, end: 20021217
  2. LOPRESSOR [Concomitant]
     Dosage: 25 MG, TID
     Route: 048
     Dates: end: 20021201
  3. DOBUTAMINE [Concomitant]
     Dosage: UNK UNK, UNK
     Route: 042
     Dates: start: 20021217, end: 20021217
  4. LIDOCAINE [Concomitant]
     Dosage: 100 MG, UNK
     Route: 042
     Dates: start: 20021217, end: 20021217
  5. RED BLOOD CELLS [Concomitant]
     Dosage: 9 U, UNK
     Dates: start: 20021217, end: 20021217
  6. FRESH FROZEN PLASMA [Concomitant]
     Dosage: 2 U, UNK
     Dates: start: 20021217, end: 20021217
  7. VANCOMYCIN HCL [Concomitant]
     Dosage: 500 MG, UNK
     Route: 042
     Dates: start: 20021217, end: 20021217
  8. SODIUM BICARBONATE [Concomitant]
     Dosage: 100 MG, UNK
     Route: 042
     Dates: start: 20021217, end: 20021217
  9. PHENYLEPHRINE [Concomitant]
     Dosage: UNK
     Route: 042
     Dates: start: 20021217, end: 20021217
  10. PROPOFOL [Concomitant]
     Dosage: UNK
     Route: 042
     Dates: start: 20021217, end: 20021217
  11. TRASYLOL [Suspect]
     Indication: MITRAL VALVE REPLACEMENT
     Dosage: UNK
     Dates: start: 20021217, end: 20021217
  12. MAGNESIUM SULFATE [Concomitant]
     Dosage: 2 MG, UNK
     Route: 042
     Dates: start: 20021217, end: 20021217
  13. CISATRACURIUM [Concomitant]
     Dosage: UNK
     Route: 042
     Dates: start: 20021217, end: 20021217
  14. ESMOLOL [Concomitant]
     Dosage: UNK
     Route: 042
     Dates: start: 20021217, end: 20021217
  15. NITROGLYCERIN [Concomitant]
     Dosage: UNK
     Route: 042
     Dates: start: 20021217, end: 20021217
  16. ALTACE [Concomitant]
     Dosage: 5 MG, UNK
     Route: 048
  17. LOVENOX [Concomitant]
     Dosage: UNK UNK, UNK
     Route: 065
     Dates: start: 20021209, end: 20021216
  18. HEPARIN [Concomitant]
     Dosage: 15000 U, UNK
     Route: 042
     Dates: start: 20021217, end: 20021217
  19. AMRINONE LACTATE [Concomitant]
     Dosage: UNK
     Route: 042
     Dates: start: 20021217, end: 20021217
  20. VECURONIUM BROMIDE [Concomitant]
     Dosage: UNK
     Route: 042
     Dates: start: 20021217, end: 20021217
  21. ADVAIR DISKUS 100/50 [Concomitant]
     Dosage: LONGTERM
     Route: 055
     Dates: end: 20021201
  22. ZAROXOLYN [Concomitant]
     Dosage: 5 MG, UNK
     Route: 048
     Dates: start: 19900101, end: 20021201
  23. FENTANYL [Concomitant]
     Dosage: UNK UNK, UNK
     Route: 042
     Dates: start: 20021217, end: 20021217
  24. AMIODARONE HCL [Concomitant]
     Dosage: UNK
     Route: 042
     Dates: start: 20021217, end: 20021217
  25. CALCIUM CHLORIDE [Concomitant]
     Dosage: UNK
     Route: 042
     Dates: start: 20021217, end: 20021217
  26. ANCEF [Concomitant]
     Dosage: 1 G, UNK
     Route: 042
     Dates: start: 20021217, end: 20021217
  27. EPINEPHRINE [Concomitant]
     Dosage: UNK
     Route: 042
     Dates: start: 20021217, end: 20021217
  28. NOREPINEPHRINE BITARTRATE [Concomitant]
     Dosage: UNK
     Route: 042
     Dates: start: 20021217, end: 20021217
  29. ASPIRIN [Concomitant]
     Dosage: 325 MG, UNK
     Route: 048
     Dates: end: 20021201
  30. VERSED [Concomitant]
     Dosage: UNK UNK, UNK
     Route: 042
     Dates: start: 20021217, end: 20021217
  31. POTASSIUM [Concomitant]
     Dosage: UNK
     Route: 042
     Dates: start: 20021217, end: 20021217
  32. LASIX [Concomitant]
     Dosage: UNK
     Route: 042
     Dates: start: 20021217, end: 20021217
  33. MANNITOL [Concomitant]
     Dosage: UNK
     Route: 042
     Dates: start: 20021217, end: 20021217
  34. PROTAMINE SULFATE [Concomitant]
     Dosage: UNK
     Route: 042
     Dates: start: 20021217, end: 20021217

REACTIONS (12)
  - PAIN [None]
  - RENAL IMPAIRMENT [None]
  - ANXIETY [None]
  - RENAL INJURY [None]
  - STRESS [None]
  - UNEVALUABLE EVENT [None]
  - FEAR [None]
  - INJURY [None]
  - DEATH [None]
  - EMOTIONAL DISTRESS [None]
  - RENAL FAILURE [None]
  - MULTI-ORGAN FAILURE [None]
